FAERS Safety Report 24110229 (Version 1)
Quarter: 2024Q3

REPORT INFORMATION
  Report Type: Spontaneous
  Country: CA (occurrence: CA)
  Receive Date: 20240718
  Receipt Date: 20240718
  Transmission Date: 20241017
  Serious: Yes (Hospitalization, Other)
  Sender: BAUSCH AND LOMB
  Company Number: CA-BAUSCH-BL-2024-010820

PATIENT
  Age: 58 Year
  Sex: Male

DRUGS (14)
  1. ALBUTEROL SULFATE [Suspect]
     Active Substance: ALBUTEROL SULFATE
     Indication: Asthma
     Route: 065
  2. BREO ELLIPTA [Suspect]
     Active Substance: FLUTICASONE FUROATE\VILANTEROL TRIFENATATE
     Indication: Product used for unknown indication
     Route: 055
  3. BUDESONIDE\FORMOTEROL FUMARATE [Suspect]
     Active Substance: BUDESONIDE\FORMOTEROL FUMARATE
     Indication: Asthma
     Route: 065
  4. FLOVENT [Suspect]
     Active Substance: FLUTICASONE PROPIONATE
     Indication: Asthma
     Dosage: FLOVENT DISKUS
     Route: 065
  5. NUCALA [Suspect]
     Active Substance: MEPOLIZUMAB
     Indication: Asthma
     Route: 042
  6. SINGULAIR [Suspect]
     Active Substance: MONTELUKAST SODIUM
     Indication: Asthma
     Route: 065
  7. SINGULAIR [Suspect]
     Active Substance: MONTELUKAST SODIUM
     Route: 065
  8. SINGULAIR [Suspect]
     Active Substance: MONTELUKAST SODIUM
     Route: 065
  9. SINGULAIR [Suspect]
     Active Substance: MONTELUKAST SODIUM
     Route: 065
  10. SPIRIVA [Suspect]
     Active Substance: TIOTROPIUM BROMIDE MONOHYDRATE
     Indication: Asthma
     Route: 065
  11. SPIRIVA [Suspect]
     Active Substance: TIOTROPIUM BROMIDE MONOHYDRATE
     Route: 065
  12. SPIRIVA [Suspect]
     Active Substance: TIOTROPIUM BROMIDE MONOHYDRATE
     Route: 065
  13. SYMBICORT [Suspect]
     Active Substance: BUDESONIDE\FORMOTEROL FUMARATE DIHYDRATE
     Indication: Asthma
     Route: 055
  14. TIOTROPIUM BROMIDE MONOHYDRATE [Suspect]
     Active Substance: TIOTROPIUM BROMIDE MONOHYDRATE
     Indication: Product used for unknown indication
     Route: 065

REACTIONS (15)
  - Asthma [Unknown]
  - Atelectasis [Unknown]
  - Bronchiectasis [Unknown]
  - Eosinophilia [Unknown]
  - Dyspnoea [Unknown]
  - Full blood count abnormal [Unknown]
  - Influenza [Unknown]
  - Loss of personal independence in daily activities [Unknown]
  - Pneumonia [Unknown]
  - Sleep disorder due to a general medical condition [Unknown]
  - Diabetes mellitus [Unknown]
  - Dysphonia [Unknown]
  - Hypertension [Unknown]
  - Wheezing [Unknown]
  - Therapeutic product effect incomplete [Unknown]
